FAERS Safety Report 5378085-8 (Version None)
Quarter: 2007Q3

REPORT INFORMATION
  Report Type: 
  Country: None (occurrence: None)
  Receive Date: 20070702
  Receipt Date: 20070702
  Transmission Date: 20080115
  Serious: Yes (Hospitalization)
  Sender: FDA-Public Use
  Company Number: None

PATIENT
  Age: 77 Year
  Sex: Male
  Weight: 72 kg

DRUGS (17)
  1. ABILIFY [Suspect]
     Indication: DEMENTIA ALZHEIMER'S TYPE
     Dosage: 10 QD
  2. ABILIFY [Suspect]
     Indication: DEPRESSION
     Dosage: 10 QD
  3. ZOLOFT [Suspect]
     Indication: DEMENTIA ALZHEIMER'S TYPE
     Dosage: 50 QD
  4. ZOLOFT [Suspect]
     Indication: DEPRESSION
     Dosage: 50 QD
  5. TRAZODONE HCL [Suspect]
     Indication: DEMENTIA ALZHEIMER'S TYPE
     Dosage: 25 QD
  6. TRAZODONE HCL [Suspect]
     Indication: DEPRESSION
     Dosage: 25 QD
  7. RAZADYNE [Suspect]
     Indication: PARANOIA
     Dosage: 8Q12
  8. NAMENDA [Suspect]
     Indication: PARANOIA
     Dosage: 10Q12
  9. DEPAKOTE [Suspect]
     Indication: PARANOIA
     Dosage: 500Q12
  10. CARDIZEM [Concomitant]
  11. COZAAR [Concomitant]
  12. LASIX [Concomitant]
  13. CELEBREX [Concomitant]
  14. MOM [Concomitant]
  15. POTASSIUM ACETATE [Concomitant]
  16. BENZTROPINE [Concomitant]
  17. ATENOLOL [Concomitant]

REACTIONS (1)
  - NEUROLEPTIC MALIGNANT SYNDROME [None]
